FAERS Safety Report 9648062 (Version 1)
Quarter: 2013Q4

REPORT INFORMATION
  Report Type: Spontaneous
  Country: US (occurrence: US)
  Receive Date: 20131028
  Receipt Date: 20131028
  Transmission Date: 20140711
  Serious: No
  Sender: FDA-Public Use
  Company Number: US-PFIZER INC-2013304214

PATIENT
  Age: 45 Year
  Sex: Female
  Weight: 56.69 kg

DRUGS (3)
  1. GABAPENTIN [Suspect]
     Indication: FIBROMYALGIA
     Dosage: 2 DF, 2X/DAY(TWO ORAL TABLETS IN MORNING AND TWO ORAL TABLETS AT NIGHT TWO TIMES A DAY)
     Route: 048
     Dates: start: 2006, end: 2006
  2. GABAPENTIN [Suspect]
     Dosage: UNK, 2X/DAY
     Route: 048
     Dates: start: 2006, end: 2006
  3. SYNTHROID [Concomitant]
     Indication: THYROID DISORDER
     Dosage: UNK

REACTIONS (5)
  - Off label use [Unknown]
  - Drug ineffective for unapproved indication [Unknown]
  - Neuralgia [Recovered/Resolved]
  - Nausea [Recovered/Resolved]
  - Abdominal discomfort [Recovered/Resolved]
